FAERS Safety Report 12427839 (Version 1)
Quarter: 2016Q2

REPORT INFORMATION
  Report Type: Spontaneous
  Country: US (occurrence: None)
  Receive Date: 20160601
  Receipt Date: 20160601
  Transmission Date: 20160815
  Serious: Yes (Disabling)
  Sender: FDA-Public Use
  Company Number: None

PATIENT
  Age: 26 Year
  Sex: Female
  Weight: 52.16 kg

DRUGS (7)
  1. FLORASTOR [Concomitant]
     Active Substance: SACCHAROMYCES CEREVISIAE
  2. VANCOMYCIN [Concomitant]
     Active Substance: VANCOMYCIN
  3. ADVIL [Concomitant]
     Active Substance: IBUPROFEN
  4. CLINDAMYCIN [Suspect]
     Active Substance: CLINDAMYCIN\CLINDAMYCIN PHOSPHATE
     Indication: PERINEAL INFECTION
     Route: 048
     Dates: start: 20160316, end: 20160325
  5. VITAMIN D [Concomitant]
     Active Substance: CHOLECALCIFEROL
  6. TYELENOL [Concomitant]
  7. GAS-X [Concomitant]
     Active Substance: DIMETHICONE

REACTIONS (1)
  - Clostridium difficile infection [None]

NARRATIVE: CASE EVENT DATE: 20160403
